FAERS Safety Report 16910894 (Version 1)
Quarter: 2019Q4

REPORT INFORMATION
  Report Type: Spontaneous
  Country: US (occurrence: US)
  Receive Date: 20191012
  Receipt Date: 20191012
  Transmission Date: 20200122
  Serious: Yes (Life-Threatening, Hospitalization, Other)
  Sender: FDA-Public Use
  Company Number: US-ACCORD-157185

PATIENT
  Age: 65 Year
  Sex: Male

DRUGS (3)
  1. AMLODIPINE [Suspect]
     Active Substance: AMLODIPINE BESYLATE
     Dosage: (STRENGTH-10MG )
     Route: 048
  2. HYDROCHLOROTHIAZIDE/LISINOPRIL [Suspect]
     Active Substance: HYDROCHLOROTHIAZIDE\LISINOPRIL
     Dosage: (STRENGTH-25 MG+20 MG )
     Route: 048
  3. CARVEDILOL/CARVEDILOL HYDROCHLODRIDE [Suspect]
     Active Substance: CARVEDILOL HYDROCHLORIDE
     Dosage: (STRENGTH-12.5 MG )
     Route: 048

REACTIONS (9)
  - Blood creatinine increased [Recovered/Resolved]
  - Intentional overdose [Unknown]
  - Electrocardiogram QRS complex prolonged [Recovered/Resolved]
  - Sinus bradycardia [Recovered/Resolved]
  - Suicide attempt [Unknown]
  - Electrocardiogram QT prolonged [Recovered/Resolved]
  - Atrioventricular block first degree [Recovered/Resolved]
  - Bundle branch block [Recovered/Resolved]
  - Shock [Recovered/Resolved]
